FAERS Safety Report 16662398 (Version 1)
Quarter: 2019Q3

REPORT INFORMATION
  Report Type: Spontaneous
  Country: KR (occurrence: KR)
  Receive Date: 20190802
  Receipt Date: 20190802
  Transmission Date: 20191004
  Serious: No
  Sender: FDA-Public Use
  Company Number: KR-EXELIXIS-CABO-19018216

PATIENT
  Sex: Male

DRUGS (2)
  1. CABOMETYX [Suspect]
     Active Substance: CABOZANTINIB S-MALATE
     Dosage: 40 MG, UNK
     Dates: start: 201812
  2. CABOMETYX [Suspect]
     Active Substance: CABOZANTINIB S-MALATE
     Indication: PRODUCT USED FOR UNKNOWN INDICATION
     Dosage: 60 MG, UNK
     Dates: start: 201811, end: 2018

REACTIONS (3)
  - Blood creatinine increased [Unknown]
  - Dyshidrotic eczema [Unknown]
  - Headache [Unknown]

NARRATIVE: CASE EVENT DATE: 2018
